FAERS Safety Report 24538197 (Version 1)
Quarter: 2024Q4

REPORT INFORMATION
  Report Type: Spontaneous
  Country: HR (occurrence: HR)
  Receive Date: 20241023
  Receipt Date: 20241023
  Transmission Date: 20250115
  Serious: Yes (Death, Other)
  Sender: BRISTOL-MYERS SQUIBB COMPANY
  Company Number: HR-BRISTOL-MYERS SQUIBB COMPANY-2024-166396

PATIENT
  Age: 43 Year
  Sex: Male

DRUGS (3)
  1. OPDIVO [Suspect]
     Active Substance: NIVOLUMAB
     Indication: Clear cell renal cell carcinoma
     Route: 042
     Dates: start: 20210716, end: 20230721
  2. OPDIVO [Suspect]
     Active Substance: NIVOLUMAB
  3. YERVOY [Suspect]
     Active Substance: IPILIMUMAB
     Indication: Clear cell renal cell carcinoma
     Route: 042
     Dates: start: 20210716

REACTIONS (1)
  - Death [Fatal]

NARRATIVE: CASE EVENT DATE: 20240808
